FAERS Safety Report 21406730 (Version 1)
Quarter: 2022Q4

REPORT INFORMATION
  Report Type: Spontaneous
  Country: US (occurrence: US)
  Receive Date: 20221004
  Receipt Date: 20221004
  Transmission Date: 20230112
  Serious: Yes (Hospitalization, Disabling, Other)
  Sender: FDA-Public Use
  Company Number: US-MERCK-1203USA03301

PATIENT
  Sex: Female
  Weight: 50.794 kg

DRUGS (3)
  1. FOSAMAX [Suspect]
     Active Substance: ALENDRONATE SODIUM
     Indication: Osteoporosis
     Dosage: 70 MG, UNK
     Route: 048
     Dates: end: 200903
  2. FOSAMAX [Suspect]
     Active Substance: ALENDRONATE SODIUM
     Indication: Osteopenia
  3. FOSAMAX PLUS D [Suspect]
     Active Substance: ALENDRONATE SODIUM\CHOLECALCIFEROL
     Indication: Osteoporosis
     Route: 048

REACTIONS (70)
  - Hip fracture [Unknown]
  - Osteoporosis [Not Recovered/Not Resolved]
  - Stress fracture [Not Recovered/Not Resolved]
  - Low turnover osteopathy [Not Recovered/Not Resolved]
  - Invasive ductal breast carcinoma [Unknown]
  - Appendicitis [Unknown]
  - Guillain-Barre syndrome [Unknown]
  - Femur fracture [Unknown]
  - Femur fracture [Not Recovered/Not Resolved]
  - Femur fracture [Not Recovered/Not Resolved]
  - Femur fracture [Not Recovered/Not Resolved]
  - Femur fracture [Not Recovered/Not Resolved]
  - Fracture [Unknown]
  - Tooth disorder [Unknown]
  - Hypercholesterolaemia [Unknown]
  - Colitis ulcerative [Unknown]
  - Ear pain [Unknown]
  - Obstructive sleep apnoea syndrome [Unknown]
  - Bronchitis [Unknown]
  - Chronic sinusitis [Not Recovered/Not Resolved]
  - Sinusitis [Unknown]
  - Sinusitis [Unknown]
  - Sinus disorder [Unknown]
  - Sinus disorder [Unknown]
  - Nasal septum deviation [Unknown]
  - Hypersomnia [Unknown]
  - Tachycardia [Unknown]
  - Anosmia [Unknown]
  - Nasal disorder [Unknown]
  - Nasal polyps [Unknown]
  - Ear pain [Unknown]
  - Greater trochanteric pain syndrome [Unknown]
  - Osteoarthritis [Unknown]
  - Proctitis [Unknown]
  - Rectal haemorrhage [Unknown]
  - Gait disturbance [Unknown]
  - Type IIb hyperlipidaemia [Unknown]
  - Labile hypertension [Unknown]
  - Glucose tolerance impaired [Unknown]
  - Urinary tract infection [Unknown]
  - Diverticulum [Unknown]
  - Ureterolithiasis [Unknown]
  - Pyelonephritis [Unknown]
  - Rosacea [Unknown]
  - Allergic sinusitis [Unknown]
  - Osteoarthritis [Unknown]
  - Hepatic steatosis [Unknown]
  - Breast pain [Unknown]
  - Varicose vein [Unknown]
  - Sinus disorder [Unknown]
  - Pollakiuria [Unknown]
  - Haematochezia [Unknown]
  - Sinusitis [Unknown]
  - Axillary mass [Unknown]
  - Brain contusion [Unknown]
  - Vaginal haemorrhage [Unknown]
  - Contusion [Unknown]
  - Acne [Unknown]
  - Pelvic discomfort [Unknown]
  - Fall [Unknown]
  - Vertigo [Unknown]
  - Myalgia [Unknown]
  - Dizziness [Unknown]
  - Musculoskeletal chest pain [Unknown]
  - Dysgeusia [Unknown]
  - Rib fracture [Recovered/Resolved]
  - Mastectomy [Unknown]
  - Rib fracture [Unknown]
  - Osteoarthritis [Unknown]
  - Costochondritis [Unknown]

NARRATIVE: CASE EVENT DATE: 19970101
